FAERS Safety Report 16216382 (Version 2)
Quarter: 2019Q2

REPORT INFORMATION
  Report Type: Spontaneous
  Country: DE (occurrence: DE)
  Receive Date: 20190419
  Receipt Date: 20190504
  Transmission Date: 20190711
  Serious: Yes (Death, Other)
  Sender: FDA-Public Use
  Company Number: DE-AUROBINDO-AUR-APL-2019-021466

PATIENT

DRUGS (10)
  1. VENLAFAXINE [Concomitant]
     Active Substance: VENLAFAXINE HYDROCHLORIDE
     Indication: DEPRESSION
     Dosage: 75 MILLIGRAM, TWO TIMES A DAY
     Route: 048
     Dates: start: 20180508, end: 20181121
  2. MIRTAZAPIN [Concomitant]
     Active Substance: MIRTAZAPINE
     Indication: DEPRESSION
     Dosage: 30 MILLIGRAM, DAILY
     Route: 048
     Dates: start: 20180508, end: 20181121
  3. OLANZAPIN [Concomitant]
     Active Substance: OLANZAPINE
     Indication: DEPRESSION
     Dosage: 5 MILLIGRAM, DAILY
     Dates: start: 20180508
  4. OLANZAPIN [Concomitant]
     Active Substance: OLANZAPINE
     Indication: HALLUCINATION
  5. LEVETIRACETAM PUREN 1000 MG FILM COATED TABLET [Suspect]
     Active Substance: LEVETIRACETAM
     Indication: EPILEPSY
     Dosage: 1000 MG IN THE MORNING AND 500 MG IN THE EVENING
     Route: 048
     Dates: start: 201805, end: 201811
  6. TAMSULOSIN [Concomitant]
     Active Substance: TAMSULOSIN
     Indication: BENIGN PROSTATIC HYPERPLASIA
     Dosage: 0.4 MILLIGRAM
     Route: 048
     Dates: start: 20180508, end: 20190201
  7. PIPAMPERONE [Concomitant]
     Active Substance: PIPAMPERONE
     Indication: INSOMNIA
  8. CHOLECALCIFEROL [Concomitant]
     Active Substance: CHOLECALCIFEROL
     Indication: PRODUCT USED FOR UNKNOWN INDICATION
     Dosage: 1000 INTERNATIONAL UNIT, DAILY
     Route: 048
     Dates: start: 20180508, end: 20190201
  9. PIPAMPERONE [Concomitant]
     Active Substance: PIPAMPERONE
     Indication: RESTLESSNESS
  10. DULOXETINE. [Concomitant]
     Active Substance: DULOXETINE
     Indication: DEPRESSION
     Dosage: 60 MILLIGRAM, DAILY
     Route: 048
     Dates: start: 20190120

REACTIONS (2)
  - Completed suicide [Fatal]
  - Depression [Fatal]

NARRATIVE: CASE EVENT DATE: 201811
